FAERS Safety Report 8794358 (Version 1)
Quarter: 2012Q4

REPORT INFORMATION
  Report Type: 
  Country: JP (occurrence: JP)
  Receive Date: 20120917
  Receipt Date: 20120917
  Transmission Date: 20130627
  Serious: Yes (Hospitalization)
  Sender: FDA-Public Use
  Company Number: JP-MYLANLABS-2012S1018523

PATIENT
  Age: 72 Year
  Sex: Female

DRUGS (2)
  1. CARBOPLATIN [Suspect]
     Indication: LUNG ADENOCARCINOMA STAGE III
     Dosage: Daily dose- 300mg/body
     Route: 041
  2. PACLITAXEL [Suspect]
     Indication: LUNG ADENOCARCINOMA STAGE III
     Route: 041

REACTIONS (2)
  - Bronchial fistula [Recovered/Resolved]
  - Infectious pleural effusion [Recovered/Resolved]
